FAERS Safety Report 21007571 (Version 1)
Quarter: 2022Q3

REPORT INFORMATION
  Report Type: Spontaneous
  Country: GB (occurrence: GB)
  Receive Date: 20220626
  Receipt Date: 20220626
  Transmission Date: 20221027
  Serious: Yes (Life-Threatening, Hospitalization, Disabling)
  Sender: FDA-Public Use
  Company Number: GB-NOVARTISPH-NVSC2022GB145751

PATIENT
  Age: 81 Year
  Sex: Female
  Weight: 57 kg

DRUGS (2)
  1. OMEPRAZOLE [Suspect]
     Active Substance: OMEPRAZOLE
     Indication: Gastrooesophageal reflux disease
     Dosage: 20 MG
     Route: 065
     Dates: start: 20070101
  2. ATORVASTATIN [Concomitant]
     Active Substance: ATORVASTATIN
     Indication: Blood cholesterol increased
     Dosage: UNK
     Route: 065

REACTIONS (2)
  - Epilepsy [Recovered/Resolved with Sequelae]
  - Medication error [Unknown]

NARRATIVE: CASE EVENT DATE: 20220610
